FAERS Safety Report 6722552-9 (Version None)
Quarter: 2010Q2

REPORT INFORMATION
  Report Type: 
  Country: None (occurrence: None)
  Receive Date: 20100512
  Receipt Date: 20100430
  Transmission Date: 20101027
  Serious: Yes (Other)
  Sender: FDA-Public Use
  Company Number: US-ELI_LILLY_AND_COMPANY-US201005001396

PATIENT
  Sex: Female

DRUGS (7)
  1. CYMBALTA [Suspect]
     Indication: FIBROMYALGIA
     Dosage: 30 MG, 2/D
     Dates: start: 20090101
  2. CYMBALTA [Suspect]
     Dosage: 30 MG, UNK
  3. CYMBALTA [Suspect]
     Dosage: 30 MG, QOD
  4. LYRICA [Concomitant]
  5. CLONOPIN [Concomitant]
  6. ULTRACET [Concomitant]
  7. FLEXERIL [Concomitant]

REACTIONS (8)
  - ACTIVITIES OF DAILY LIVING IMPAIRED [None]
  - CONVULSION [None]
  - DIZZINESS [None]
  - HEPATIC ENZYME INCREASED [None]
  - IRRITABILITY [None]
  - LOSS OF CONSCIOUSNESS [None]
  - PARAESTHESIA [None]
  - URINARY INCONTINENCE [None]
